FAERS Safety Report 7064487 (Version 3)
Quarter: 2019Q4

REPORT INFORMATION
  Report Type: Spontaneous
  Country: FR (occurrence: FR)
  Receive Date: 20090727
  Receipt Date: 20191024
  Transmission Date: 20200122
  Serious: Yes (Life-Threatening, Hospitalization, Other)
  Sender: FDA-Public Use
  Company Number: FR-PFIZER INC-2009240377

PATIENT
  Age: 25 Year
  Sex: Male
  Weight: 60 kg

DRUGS (33)
  1. CARDENSIEL [Interacting]
     Active Substance: BISOPROLOL FUMARATE
     Dosage: 7500 UG, 1X/DAY
     Route: 048
     Dates: start: 20090515, end: 20090602
  2. AMBISOME [Interacting]
     Active Substance: AMPHOTERICIN B
     Dosage: 180 MG, 1X/DAY
     Route: 042
     Dates: start: 20090519, end: 20090528
  3. AMBISOME [Interacting]
     Active Substance: AMPHOTERICIN B
     Dosage: 180 MG, QD
     Route: 042
     Dates: start: 20090421, end: 20090513
  4. TARDYFERON [Concomitant]
     Active Substance: FERROUS SULFATE
     Dosage: 80 MG, 2X/DAY
     Route: 048
     Dates: start: 20090429
  5. AMBISOME [Interacting]
     Active Substance: AMPHOTERICIN B
     Dosage: UNK
     Route: 042
     Dates: start: 2009
  6. ALDACTONE [Concomitant]
     Active Substance: SPIRONOLACTONE
     Dosage: 25 MG, 1X/DAY (ALDACTONE: STRENGTH:U)
     Route: 048
     Dates: start: 20090430
  7. SUBUTEX [Concomitant]
     Active Substance: BUPRENORPHINE HYDROCHLORIDE
     Dosage: 2 DF, 1X/DAY
     Route: 042
  8. ALPRAZOLAM. [Concomitant]
     Active Substance: ALPRAZOLAM
     Dosage: 0.5 MG, 3X/DAY
     Route: 048
     Dates: start: 20090430
  9. DIFFU K [Concomitant]
     Active Substance: POTASSIUM CHLORIDE
     Dosage: UNK
     Route: 048
     Dates: start: 20090503, end: 20090524
  10. INEXIUM [Concomitant]
     Active Substance: ESOMEPRAZOLE
     Dosage: 20 MG,QD (INEXIUM STRENGTH: U)
     Route: 048
     Dates: start: 20090429
  11. ALDACTONE [Concomitant]
     Active Substance: SPIRONOLACTONE
     Dosage: 1 DF, 1X/DAY
     Route: 016
     Dates: start: 20090430
  12. SUBUTEX [Concomitant]
     Active Substance: BUPRENORPHINE HYDROCHLORIDE
     Indication: DRUG DEPENDENCE
     Dosage: 0.4 MG, 2X/DAY (EVERY 12 HR)
     Route: 048
  13. COLCHIMAX [Concomitant]
     Dosage: 63.5 MG,QD
     Route: 048
     Dates: start: 20090430, end: 20090518
  14. BI-PROFENID [Concomitant]
     Active Substance: KETOPROFEN
     Dosage: 150 MG, 2X/DAY
     Route: 048
     Dates: start: 20090509, end: 20090517
  15. ACUPAN [Concomitant]
     Active Substance: NEFOPAM HYDROCHLORIDE
     Indication: PAIN
     Dosage: UNK
     Route: 065
     Dates: start: 20090509, end: 20090527
  16. TRIFLUCAN [Interacting]
     Active Substance: FLUCONAZOLE
     Dosage: 400 MG, 1X/DAY (TRIFLUCAN)
     Route: 042
     Dates: start: 20090514, end: 20090602
  17. AMBISOME [Interacting]
     Active Substance: AMPHOTERICIN B
     Dosage: 120 MG, QD
     Route: 042
     Dates: start: 20090519, end: 200907
  18. AMBISOME [Interacting]
     Active Substance: AMPHOTERICIN B
     Dosage: 180 MG, QD
     Route: 042
     Dates: start: 20090529, end: 20090624
  19. INEXIUM [Concomitant]
     Active Substance: ESOMEPRAZOLE
     Dosage: 200 MG, 1X/DAY
     Route: 048
     Dates: start: 20090429
  20. INEXIUM [Concomitant]
     Active Substance: ESOMEPRAZOLE
     Dosage: 1 DF, QD
     Route: 065
     Dates: start: 20090429
  21. AMBISOME [Interacting]
     Active Substance: AMPHOTERICIN B
     Dosage: 120 MG, 1X/DAY
     Route: 042
     Dates: start: 20090422, end: 20090509
  22. LASILIX [Concomitant]
     Active Substance: FUROSEMIDE
     Dosage: 40 MG, 1X/DAY
     Route: 048
     Dates: start: 20090502
  23. NICOTINE. [Concomitant]
     Active Substance: NICOTINE
     Dosage: 21 MG,QD
     Route: 061
  24. DAFALGAN [Concomitant]
     Active Substance: ACETAMINOPHEN
     Dosage: 500 MG, 4X/DAY
     Route: 048
     Dates: start: 20090429
  25. DAFALGAN [Concomitant]
     Active Substance: ACETAMINOPHEN
     Dosage: 4 DF, QD
     Route: 048
     Dates: start: 20090429
  26. DIFFU K [Concomitant]
     Active Substance: POTASSIUM CHLORIDE
     Dosage: UNK
     Route: 048
     Dates: start: 20090530
  27. ANCOTIL [Concomitant]
     Active Substance: FLUCYTOSINE
     Dosage: UNK
     Route: 065
     Dates: start: 20090422, end: 20090509
  28. ANCOTIL [Concomitant]
     Active Substance: FLUCYTOSINE
     Dosage: UNK
     Route: 065
     Dates: start: 20090602
  29. CANCIDAS [Concomitant]
     Active Substance: CASPOFUNGIN ACETATE
     Dosage: UNK (CANCIDAS:POWDER, FOR SOLUTION)
     Route: 042
     Dates: start: 20090419, end: 20090421
  30. CORDARONE [Suspect]
     Active Substance: AMIODARONE HYDROCHLORIDE
     Dosage: 400 MG, 1X/DAY
     Route: 048
     Dates: start: 20090507, end: 20090602
  31. LASILIX [Concomitant]
     Active Substance: FUROSEMIDE
     Dosage: 40 MG,BID
     Route: 048
     Dates: start: 20090503
  32. NICOTINE. [Concomitant]
     Active Substance: NICOTINE
     Dosage: 1 DF, QD
     Route: 062
  33. HEPARIN [Concomitant]
     Active Substance: HEPARIN SODIUM
     Dosage: 0.4 ML, 2X/DAY
     Route: 042
     Dates: start: 20090429

REACTIONS (6)
  - Cardio-respiratory arrest [Recovered/Resolved]
  - Hypokalaemia [Recovered/Resolved]
  - Torsade de pointes [Recovered/Resolved]
  - Myoclonic epilepsy [Recovered/Resolved]
  - Electrocardiogram QT prolonged [Recovered/Resolved]
  - Drug interaction [Recovered/Resolved]

NARRATIVE: CASE EVENT DATE: 20090523
